FAERS Safety Report 24125159 (Version 2)
Quarter: 2024Q3

REPORT INFORMATION
  Report Type: Spontaneous
  Country: CN (occurrence: CN)
  Receive Date: 20240723
  Receipt Date: 20240726
  Transmission Date: 20241016
  Serious: Yes (Other)
  Sender: NOVARTIS
  Company Number: CN-002147023-NVSC2024CN150299

PATIENT
  Age: 72 Year
  Sex: Female
  Weight: 45 kg

DRUGS (4)
  1. CARBAMAZEPINE [Suspect]
     Active Substance: CARBAMAZEPINE
     Indication: Intervertebral disc protrusion
     Dosage: 100 MG, BID
     Route: 048
     Dates: start: 20240629, end: 20240710
  2. ETORICOXIB [Concomitant]
     Active Substance: ETORICOXIB
     Indication: Intervertebral disc protrusion
     Dosage: 60 MG, QD
     Route: 048
     Dates: start: 20240629, end: 20240710
  3. MANNITOL [Concomitant]
     Active Substance: MANNITOL
     Indication: Intervertebral disc protrusion
     Dosage: 25 G, QD
     Route: 041
     Dates: start: 20240629, end: 20240710
  4. ESOMEPRAZOLE MAGNESIUM [Concomitant]
     Active Substance: ESOMEPRAZOLE MAGNESIUM
     Indication: Intervertebral disc protrusion
     Dosage: 20 MG, BID (ENTERIC COATED TABLETS)
     Route: 048
     Dates: start: 20240629, end: 20240710

REACTIONS (11)
  - Rash [Recovering/Resolving]
  - Pruritus [Recovering/Resolving]
  - Pharyngeal oedema [Recovering/Resolving]
  - Mouth ulceration [Recovering/Resolving]
  - Oropharyngeal pain [Recovering/Resolving]
  - Lip swelling [Recovering/Resolving]
  - Swelling face [Recovering/Resolving]
  - Dysphonia [Unknown]
  - Odynophagia [Unknown]
  - Blood pressure abnormal [Unknown]
  - Dysphagia [Unknown]

NARRATIVE: CASE EVENT DATE: 20240710
